FAERS Safety Report 10631595 (Version 2)
Quarter: 2014Q4

REPORT INFORMATION
  Report Type: Spontaneous
  Country: US (occurrence: US)
  Receive Date: 20141205
  Receipt Date: 20141210
  Transmission Date: 20150529
  Serious: Yes (Other)
  Sender: FDA-Public Use
  Company Number: US-ROCHE-1502218

PATIENT
  Age: 10 Year
  Sex: Male
  Weight: 22.4 kg

DRUGS (7)
  1. NUTROPIN AQ [Suspect]
     Active Substance: SOMATROPIN
     Indication: GROWTH HORMONE DEFICIENCY
  2. NUTROPIN AQ [Suspect]
     Active Substance: SOMATROPIN
     Indication: DWARFISM
     Route: 058
     Dates: start: 20130411
  3. ZOLOFT [Concomitant]
     Active Substance: SERTRALINE HYDROCHLORIDE
     Indication: ANXIETY
     Route: 048
     Dates: start: 20121128
  4. NUTRIVENT [Concomitant]
  5. CETIRIZINE HCL [Concomitant]
     Active Substance: CETIRIZINE HYDROCHLORIDE
     Indication: HYPERSENSITIVITY
     Route: 048
     Dates: start: 20121128
  6. PEDIASURE [Concomitant]
     Active Substance: VITAMINS
     Indication: MALNUTRITION
     Dosage: 2-3 TIMES IN A DAY. LIQ
     Route: 048
     Dates: start: 20121128
  7. NASONEX [Concomitant]
     Active Substance: MOMETASONE FUROATE
     Indication: HYPERSENSITIVITY
     Route: 050
     Dates: start: 20121128

REACTIONS (7)
  - Red blood cell count decreased [Not Recovered/Not Resolved]
  - White blood cell count decreased [Not Recovered/Not Resolved]
  - Full blood count abnormal [Recovering/Resolving]
  - Blood iron decreased [Recovering/Resolving]
  - Serum ferritin decreased [Recovering/Resolving]
  - Haematochezia [Not Recovered/Not Resolved]
  - Haemoglobin decreased [Not Recovered/Not Resolved]

NARRATIVE: CASE EVENT DATE: 20141120
